FAERS Safety Report 15654196 (Version 2)
Quarter: 2019Q2

REPORT INFORMATION
  Report Type: Report from Study
  Country: BR (occurrence: BR)
  Receive Date: 20181125
  Receipt Date: 20190415
  Transmission Date: 20190711
  Serious: Yes (Other)
  Sender: FDA-Public Use
  Company Number: BR-BIOGEN-2018BI00662178

PATIENT
  Sex: Female

DRUGS (1)
  1. TECFIDERA [Suspect]
     Active Substance: DIMETHYL FUMARATE
     Indication: MULTIPLE SCLEROSIS
     Route: 050
     Dates: start: 201711, end: 201803

REACTIONS (14)
  - Malaise [Unknown]
  - Diarrhoea [Unknown]
  - Demyelination [Not Recovered/Not Resolved]
  - Feeling hot [Unknown]
  - Paralysis [Not Recovered/Not Resolved]
  - Dizziness [Unknown]
  - Renal impairment [Not Recovered/Not Resolved]
  - Tooth loss [Not Recovered/Not Resolved]
  - Vomiting [Unknown]
  - Spinal disorder [Unknown]
  - Gastrointestinal disorder [Unknown]
  - Bone density abnormal [Not Recovered/Not Resolved]
  - Flushing [Unknown]
  - Nausea [Unknown]
